FAERS Safety Report 17688175 (Version 1)
Quarter: 2020Q2

REPORT INFORMATION
  Report Type: Spontaneous
  Country: CH (occurrence: CH)
  Receive Date: 20200421
  Receipt Date: 20200421
  Transmission Date: 20200714
  Serious: Yes (Disabling, Other)
  Sender: FDA-Public Use
  Company Number: CH-AMERICAN REGENT INC-2020000894

PATIENT
  Sex: Male

DRUGS (10)
  1. ACIDUM FOLICUM STREULI [Concomitant]
     Active Substance: FOLIC ACID
     Indication: PRODUCT USED FOR UNKNOWN INDICATION
     Dosage: 5 MILLIGRAM, EVERY MORNING
     Route: 048
  2. SYMBICORT [Concomitant]
     Active Substance: BUDESONIDE\FORMOTEROL FUMARATE DIHYDRATE
     Indication: PRODUCT USED FOR UNKNOWN INDICATION
     Dosage: 200/6 (1 DOSAGE FORM, 1 D)
  3. FERINJECT [Suspect]
     Active Substance: FERRIC CARBOXYMALTOSE
     Indication: IRON DEFICIENCY ANAEMIA
     Dosage: 1000 MILLIGRAM, 1 CYCLICAL
     Route: 042
     Dates: end: 20190709
  4. SODIUM PHOSPHATE [Concomitant]
     Active Substance: SODIUM PHOSPHATE
     Indication: PRODUCT USED FOR UNKNOWN INDICATION
     Dosage: 9 DOSAGE FORMS (3 DOSAGE FORM, 3 IN 1 D)
     Route: 048
  5. CALCIMAGON-D3 [Concomitant]
     Active Substance: CALCIUM\CHOLECALCIFEROL
     Indication: PRODUCT USED FOR UNKNOWN INDICATION
     Dosage: 500MG / 800 IE 1-0-0 (1 DOSAGE FORM, EVERY MORNING)
     Route: 048
  6. VEDOLIZUMAB [Concomitant]
     Active Substance: VEDOLIZUMAB
     Indication: PRODUCT USED FOR UNKNOWN INDICATION
     Dosage: 1 DOSAGE FORM, 1 IN 8 WK
     Route: 042
  7. SALOFALK                           /00747601/ [Concomitant]
     Active Substance: MESALAMINE
     Indication: PRODUCT USED FOR UNKNOWN INDICATION
     Dosage: 4.5 GRAM, EVERY MORNING
     Route: 048
  8. DEXILANT [Concomitant]
     Active Substance: DEXLANSOPRAZOLE
     Indication: PRODUCT USED FOR UNKNOWN INDICATION
     Dosage: 120 MG (60 MG, EVERY MORNING AND NIGHT)
     Route: 048
  9. CARVEDILOL. [Concomitant]
     Active Substance: CARVEDILOL
     Indication: PRODUCT USED FOR UNKNOWN INDICATION
     Dosage: 12.5 MG (6.25 MG, EVERY MORNING AND NIGHT)
     Route: 048
  10. NOVALGIN (METAMIZOLE SODIUM) [Concomitant]
     Active Substance: METAMIZOLE SODIUM
     Indication: PRODUCT USED FOR UNKNOWN INDICATION
     Dosage: 1500 MG (500 MG, 3 IN 1 D)
     Route: 048

REACTIONS (5)
  - Fracture [Not Recovered/Not Resolved]
  - Osteomalacia [Not Recovered/Not Resolved]
  - Hypophosphataemia [Not Recovered/Not Resolved]
  - Urine phosphorus increased [Unknown]
  - Bone metabolism disorder [Unknown]

NARRATIVE: CASE EVENT DATE: 2018
